FAERS Safety Report 8623836 (Version 7)
Quarter: 2014Q2

REPORT INFORMATION
  Report Type: Spontaneous
  Country: US (occurrence: US)
  Receive Date: 20120620
  Receipt Date: 20140522
  Transmission Date: 20141212
  Serious: Yes (Other)
  Sender: FDA-Public Use
  Company Number: US-PFIZER INC-2012144892

PATIENT
  Age: 63 Year
  Sex: Male

DRUGS (10)
  1. LYRICA [Suspect]
     Indication: PAIN
     Dosage: 225 MG, 3X/DAY
     Route: 048
  2. LYRICA [Suspect]
     Indication: NEUROPATHY PERIPHERAL
     Dosage: 75 MG, 3X/DAY
     Route: 048
  3. LYRICA [Suspect]
     Indication: NEUROPATHY PERIPHERAL
     Dosage: UNK
  4. LYRICA [Suspect]
     Indication: HEARING IMPAIRED
  5. NEURONTIN [Suspect]
     Indication: PAIN
     Dosage: 300 MG, 3X/DAY
  6. NEURONTIN [Suspect]
     Indication: NEUROPATHY PERIPHERAL
     Dosage: UNK
  7. NEURONTIN [Suspect]
     Indication: HEARING IMPAIRED
  8. NEURONTIN [Suspect]
     Indication: HEARING IMPAIRED
  9. TRAMADOL HCL [Suspect]
     Indication: PAIN
     Dosage: 100 MG, 3X/DAY
  10. TRAMADOL HCL [Suspect]
     Dosage: UNK

REACTIONS (12)
  - Suicidal ideation [Unknown]
  - Deafness [Unknown]
  - Nerve injury [Unknown]
  - Withdrawal syndrome [Unknown]
  - Pain [Unknown]
  - Limb discomfort [Unknown]
  - Anger [Unknown]
  - Pain in extremity [Unknown]
  - Gait disturbance [Unknown]
  - Neuropathy peripheral [Unknown]
  - Activities of daily living impaired [Unknown]
  - Drug effect incomplete [Unknown]
